FAERS Safety Report 5743467-9 (Version None)
Quarter: 2008Q2

REPORT INFORMATION
  Report Type: 
  Country: None (occurrence: None)
  Receive Date: 20080520
  Receipt Date: 20080508
  Transmission Date: 20081010
  Serious: Yes (Death)
  Sender: FDA-Public Use
  Company Number: NL-JNJFOC-20080407686

PATIENT
  Sex: Male
  Weight: 78 kg

DRUGS (10)
  1. REMICADE [Suspect]
     Indication: PSORIASIS
     Route: 042
  2. METFORMIN HCL [Concomitant]
     Indication: DIABETES MELLITUS
     Route: 048
  3. ACETAMINOPHEN [Concomitant]
     Indication: PREMEDICATION
     Route: 048
  4. CETIRIZINE HCL [Concomitant]
     Indication: PREMEDICATION
     Route: 048
  5. CARBASALATE CA [Concomitant]
     Indication: PROPHYLAXIS
     Route: 048
  6. VALSARTAN [Concomitant]
     Indication: HYPERTENSION
     Route: 048
  7. HYDROCHLOROTHIAZIDE [Concomitant]
     Indication: HYPERTENSION
     Route: 048
  8. DENOREX RX [Concomitant]
     Indication: PSORIASIS
     Route: 061
  9. NAPROXEN [Concomitant]
     Indication: MYALGIA
     Route: 061
  10. PANTOPRAZOLE SODIUM [Concomitant]
     Indication: PROPHYLAXIS
     Route: 048

REACTIONS (1)
  - MYOCARDIAL INFARCTION [None]
